FAERS Safety Report 9553467 (Version 1)
Quarter: 2013Q2

REPORT INFORMATION
  Report Type: Spontaneous
  Country: US (occurrence: None)
  Receive Date: 20130425
  Receipt Date: 20130425
  Transmission Date: 20140414
  Serious: Yes (Hospitalization)
  Sender: FDA-Public Use
  Company Number: 141124

PATIENT
  Age: 64 Year
  Sex: Male

DRUGS (3)
  1. ADRIAMYCIN [Suspect]
     Indication: PLASMA CELL MYELOMA
     Dates: start: 20120706, end: 20120711
  2. CYCOOPHOSPHAMIDE [Concomitant]
  3. DEXAMETHASONE [Concomitant]

REACTIONS (1)
  - Febrile neutropenia [None]
